FAERS Safety Report 11184286 (Version 2)
Quarter: 2015Q2

REPORT INFORMATION
  Report Type: Spontaneous
  Country: PL (occurrence: PL)
  Receive Date: 20150612
  Receipt Date: 20150619
  Transmission Date: 20150821
  Serious: Yes (Other)
  Sender: FDA-Public Use
  Company Number: PL-ROCHE-1590614

PATIENT
  Age: 37 Year
  Sex: Female

DRUGS (4)
  1. VALCYTE [Suspect]
     Active Substance: VALGANCICLOVIR HYDROCHLORIDE
     Indication: PRODUCT USED FOR UNKNOWN INDICATION
     Route: 065
  2. INTERFERON ALFA-2A [Suspect]
     Active Substance: INTERFERON ALFA-2A
     Indication: PRODUCT USED FOR UNKNOWN INDICATION
     Route: 065
  3. RIBAVIRIN. [Suspect]
     Active Substance: RIBAVIRIN
     Indication: PRODUCT USED FOR UNKNOWN INDICATION
     Route: 065
  4. CYMEVENE [Suspect]
     Active Substance: GANCICLOVIR
     Indication: PRODUCT USED FOR UNKNOWN INDICATION
     Route: 065

REACTIONS (12)
  - IgA nephropathy [Unknown]
  - Cytomegalovirus infection [Unknown]
  - Urinary tract infection [Unknown]
  - Dysuria [Unknown]
  - Klebsiella infection [Unknown]
  - Blood creatinine increased [Recovering/Resolving]
  - Abdominal pain upper [Recovering/Resolving]
  - Glomerulonephritis rapidly progressive [Unknown]
  - Acute kidney injury [Unknown]
  - Pyrexia [Unknown]
  - Transplant dysfunction [Unknown]
  - Proteinuria [Unknown]
